FAERS Safety Report 10421454 (Version 3)
Quarter: 2014Q4

REPORT INFORMATION
  Report Type: Spontaneous
  Country: US (occurrence: US)
  Receive Date: 20140901
  Receipt Date: 20141006
  Transmission Date: 20150528
  Serious: Yes (Death, Hospitalization)
  Sender: FDA-Public Use
  Company Number: US-UNITED THERAPEUTICS-UNT-2014-006371

PATIENT
  Age: 75 Year
  Sex: Male
  Weight: 102.95 kg

DRUGS (2)
  1. REMODULIN [Suspect]
     Active Substance: TREPROSTINIL
     Indication: COR PULMONALE CHRONIC
     Dosage: 0.056 ?G/KG, CONTINUING
     Route: 058
     Dates: start: 20140207
  2. REMODULIN [Suspect]
     Active Substance: TREPROSTINIL
     Indication: PULMONARY EMBOLISM
     Dosage: 0.056 ?G/KG, CONTINUING
     Route: 058
     Dates: start: 20140129

REACTIONS (2)
  - Pulmonary hypertension [Fatal]
  - Right ventricular failure [Fatal]

NARRATIVE: CASE EVENT DATE: 20140806
